FAERS Safety Report 12232068 (Version 2)
Quarter: 2016Q2

REPORT INFORMATION
  Report Type: Spontaneous
  Country: CH (occurrence: CH)
  Receive Date: 20160401
  Receipt Date: 20160511
  Transmission Date: 20160815
  Serious: Yes (Hospitalization, Other)
  Sender: FDA-Public Use
  Company Number: CH-TEVA-647348ISR

PATIENT
  Age: 22 Year
  Sex: Female

DRUGS (10)
  1. 4-CHLORDEHYDROMETHYLTESTOSTERONE [Suspect]
     Active Substance: CHLORODEHYDROMETHYLTESTOSTERONE
     Route: 048
  2. ALDACTONE [Suspect]
     Active Substance: SPIRONOLACTONE
     Indication: DIURETIC THERAPY
     Route: 048
  3. CLENBUTEROL [Suspect]
     Active Substance: CLENBUTEROL
     Route: 048
  4. INSULIN-LIKE GROWTH FACTOR 1 SEGMENT [Suspect]
     Active Substance: MECASERMIN
     Route: 065
  5. ANASTROZOLE. [Suspect]
     Active Substance: ANASTROZOLE
     Route: 048
  6. STANOZOLOL [Suspect]
     Active Substance: STANOZOLOL
     Route: 048
  7. LIOTHYRONINE [Suspect]
     Active Substance: LIOTHYRONINE
     Route: 048
  8. MECASERMIN [Suspect]
     Active Substance: MECASERMIN
     Route: 048
  9. TORASEMIDE [Suspect]
     Active Substance: TORSEMIDE
     Indication: DIURETIC THERAPY
     Route: 048
  10. LEVOTHYROXINE SODIUM. [Suspect]
     Active Substance: LEVOTHYROXINE SODIUM
     Route: 048

REACTIONS (3)
  - Acute respiratory distress syndrome [Recovering/Resolving]
  - Pneumonia [Recovering/Resolving]
  - Hyperthyroidism [Unknown]
